FAERS Safety Report 8375690-1 (Version None)
Quarter: 2012Q2

REPORT INFORMATION
  Report Type: 
  Country: None (occurrence: None)
  Receive Date: 20120522
  Receipt Date: 20120517
  Transmission Date: 20120825
  Serious: Yes (Other)
  Sender: FDA-Public Use
  Company Number: US-PFIZER INC-2012120911

PATIENT
  Sex: Female
  Weight: 78 kg

DRUGS (6)
  1. TAMOXIFEN [Concomitant]
     Indication: BLOOD CHOLESTEROL ABNORMAL
     Dosage: 10 MG, 1X/DAY (DAILY)
     Dates: end: 20120501
  2. VENLAFAXINE [Concomitant]
     Dosage: 75 MG, 1X/DAY IN THE AFTERNOON
  3. SUTENT [Suspect]
     Indication: RENAL CANCER
     Dosage: 50 MG, 1X/DAY (DAILY)
     Dates: start: 20120201, end: 20120101
  4. SUTENT [Suspect]
     Indication: NEPHRECTOMY
     Dosage: 37.5 MG, 1X/DAY (DAILY)
     Dates: start: 20120401
  5. TAMOXIFEN [Concomitant]
     Dosage: 20 MG, 1X/DAY (DAILY)
     Dates: start: 20120516
  6. CLONIDINE [Suspect]
     Indication: HYPERTENSION
     Dosage: 10 MG, 3X/DAY
     Dates: end: 20120401

REACTIONS (2)
  - HYPERTENSION [None]
  - MIGRAINE [None]
